FAERS Safety Report 4451195-5 (Version None)
Quarter: 2004Q3

REPORT INFORMATION
  Report Type: 
  Country: None (occurrence: None)
  Receive Date: 20040914
  Receipt Date: 20040701
  Transmission Date: 20050211
  Serious: Yes (Hospitalization)
  Sender: FDA-Public Use
  Company Number: WAES 0406GBR00102

PATIENT
  Age: 70 Year
  Sex: Male

DRUGS (2)
  1. VIOXX [Suspect]
     Indication: NEOPLASM PROPHYLAXIS
     Dosage: 25 MG/DAILY PO
     Route: 048
     Dates: start: 20031223, end: 20040514
  2. ASPIRIN [Concomitant]

REACTIONS (4)
  - COLITIS [None]
  - HAEMOGLOBIN DECREASED [None]
  - SEPSIS [None]
  - TACHYCARDIA [None]
